FAERS Safety Report 16183978 (Version 1)
Quarter: 2019Q2

REPORT INFORMATION
  Report Type: Spontaneous
  Country: US (occurrence: US)
  Receive Date: 20190411
  Receipt Date: 20190411
  Transmission Date: 20190711
  Serious: No
  Sender: FDA-Public Use
  Company Number: US-TEVA-2019-US-1035751

PATIENT
  Sex: Female

DRUGS (1)
  1. MICON VAG SUPP [Suspect]
     Active Substance: MICONAZOLE
     Indication: FUNGAL INFECTION
     Route: 067
     Dates: start: 20190402

REACTIONS (2)
  - Product cleaning inadequate [Unknown]
  - Drug ineffective [Unknown]

NARRATIVE: CASE EVENT DATE: 20190402
